FAERS Safety Report 16053244 (Version 2)
Quarter: 2019Q1

REPORT INFORMATION
  Report Type: Report from Study
  Country: BE (occurrence: BE)
  Receive Date: 20190308
  Receipt Date: 20190314
  Transmission Date: 20190418
  Serious: Yes (Hospitalization)
  Sender: FDA-Public Use
  Company Number: BE-BAYER-2019-037613

PATIENT
  Age: 86 Year
  Sex: Male

DRUGS (10)
  1. NEXAVAR [Suspect]
     Active Substance: SORAFENIB
     Indication: HEPATOCELLULAR CARCINOMA
     Dosage: 600 MG DAILY
     Dates: start: 20190205
  2. TAMSULOSIN [Concomitant]
     Active Substance: TAMSULOSIN
  3. PERINDOPRIL [Concomitant]
     Active Substance: PERINDOPRIL
  4. MACROGOL;POTASSIUM CHLORIDE;SODIUM BICARBONATE;SODIUM CHLORIDE [Concomitant]
  5. TRADONAL [Concomitant]
     Active Substance: TRAMADOL HYDROCHLORIDE
  6. RIOPAN [PIROXICAM] [Concomitant]
  7. PANTOMED [PANTOPRAZOLE SODIUM SESQUIHYDRATE] [Concomitant]
  8. LYRICA [Concomitant]
     Active Substance: PREGABALIN
  9. ASAFLOW [Concomitant]
     Active Substance: ASPIRIN
  10. OXYCONTIN [Concomitant]
     Active Substance: OXYCODONE HYDROCHLORIDE

REACTIONS (8)
  - Headache [Not Recovered/Not Resolved]
  - Fatigue [None]
  - Constipation [Not Recovered/Not Resolved]
  - Dyspnoea [Not Recovered/Not Resolved]
  - Mucosal inflammation [Not Recovered/Not Resolved]
  - Pyrexia [None]
  - Stress [Not Recovered/Not Resolved]
  - Pneumonia [None]

NARRATIVE: CASE EVENT DATE: 20190219
